FAERS Safety Report 15441189 (Version 7)
Quarter: 2019Q4

REPORT INFORMATION
  Report Type: Spontaneous
  Country: US (occurrence: US)
  Receive Date: 20180928
  Receipt Date: 20191219
  Transmission Date: 20200122
  Serious: No
  Sender: FDA-Public Use
  Company Number: US-PFIZER INC-2018393792

PATIENT
  Age: 69 Year
  Sex: Female
  Weight: 62 kg

DRUGS (4)
  1. CELEBREX [Suspect]
     Active Substance: CELECOXIB
     Indication: OSTEOARTHRITIS
     Dosage: 200 MG, 2X/DAY (FOR 30 DAYS)
     Route: 048
  2. CELEBREX [Suspect]
     Active Substance: CELECOXIB
     Indication: FIBROMYALGIA
     Dosage: 200 MG, 1X/DAY
  3. CELEBREX [Suspect]
     Active Substance: CELECOXIB
     Indication: MUSCULOSKELETAL PAIN
  4. CELEBREX [Suspect]
     Active Substance: CELECOXIB
     Indication: ARTHRALGIA

REACTIONS (3)
  - Product use issue [Unknown]
  - Osteoarthritis [Unknown]
  - Off label use [Unknown]
